FAERS Safety Report 4477233-1 (Version None)
Quarter: 2004Q4

REPORT INFORMATION
  Report Type: 
  Country: None (occurrence: None)
  Receive Date: 20041018
  Receipt Date: 20041008
  Transmission Date: 20050328
  Serious: Yes (Death)
  Sender: FDA-Public Use
  Company Number: US-JNJFOC-20040900526

PATIENT
  Sex: Female
  Weight: 61.24 kg

DRUGS (2)
  1. RISPERDAL [Suspect]
     Indication: DEMENTIA
     Route: 065
  2. ESCITALOPRAM OXALATE [Concomitant]
     Indication: DEPRESSION

REACTIONS (1)
  - CEREBROVASCULAR ACCIDENT [None]
